FAERS Safety Report 8220216-6 (Version None)
Quarter: 2012Q1

REPORT INFORMATION
  Report Type: 
  Country: None (occurrence: None)
  Receive Date: 20120320
  Receipt Date: 20120308
  Transmission Date: 20120608
  Serious: Yes (Hospitalization)
  Sender: FDA-Public Use
  Company Number: US-BAYER-2012-023929

PATIENT
  Age: 40 Year
  Sex: Female
  Weight: 86.168 kg

DRUGS (3)
  1. TOPROL-XL [Concomitant]
     Indication: HYPERTENSION
     Dosage: 50 MG, BID
     Route: 048
     Dates: start: 20100518
  2. YASMIN [Suspect]
     Dosage: UNK
  3. DIOVAN [Concomitant]
     Indication: HYPERTENSION
     Dosage: 160/25 MG,QD
     Route: 048

REACTIONS (1)
  - DEEP VEIN THROMBOSIS [None]
